FAERS Safety Report 5926393-1 (Version None)
Quarter: 2008Q4

REPORT INFORMATION
  Report Type: 
  Country: None (occurrence: None)
  Receive Date: 20081022
  Receipt Date: 20081014
  Transmission Date: 20090506
  Serious: Yes (Other)
  Sender: FDA-Public Use
  Company Number: PL-AMGEN-UK313786

PATIENT
  Sex: Female

DRUGS (4)
  1. NEULASTA [Suspect]
     Indication: NEUTROPENIA
     Route: 065
  2. IFOSFAMIDE [Concomitant]
     Route: 065
  3. ADRIAMYCIN PFS [Concomitant]
     Route: 065
  4. VINCRISTINE [Concomitant]
     Route: 065

REACTIONS (3)
  - HEART RATE INCREASED [None]
  - PYREXIA [None]
  - RASH [None]
